FAERS Safety Report 19299017 (Version 1)
Quarter: 2021Q2

REPORT INFORMATION
  Report Type: Spontaneous
  Country: FR (occurrence: FR)
  Receive Date: 20210525
  Receipt Date: 20210525
  Transmission Date: 20210717
  Serious: Yes (Other)
  Sender: FDA-Public Use
  Company Number: FR-JNJFOC-20210538999

PATIENT
  Sex: Female

DRUGS (3)
  1. BISOPROLOL [Concomitant]
     Active Substance: BISOPROLOL
     Dosage: 50 MG IN THE MORNING AND 25 MG IN THE EVENING
     Dates: start: 202103
  2. XARELTO [Suspect]
     Active Substance: RIVAROXABAN
     Indication: PULMONARY EMBOLISM
     Dosage: 20 MG, QD
     Route: 048
     Dates: start: 201811, end: 202104
  3. BISOPROLOL [Concomitant]
     Active Substance: BISOPROLOL
     Dosage: 25 MG, BID

REACTIONS (8)
  - Cardiac ablation [Unknown]
  - Gait disturbance [Unknown]
  - International normalised ratio decreased [Unknown]
  - Red blood cell sedimentation rate increased [Unknown]
  - Hypertension [Unknown]
  - Hypoaesthesia [Recovered/Resolved]
  - Drug hypersensitivity [Unknown]
  - Erythema [Recovered/Resolved]

NARRATIVE: CASE EVENT DATE: 201906
